FAERS Safety Report 11580249 (Version 1)
Quarter: 2015Q3

REPORT INFORMATION
  Report Type: Spontaneous
  Country: US (occurrence: US)
  Receive Date: 20150916
  Receipt Date: 20150916
  Transmission Date: 20151125
  Serious: No
  Sender: FDA-Public Use
  Company Number: US-ELI_LILLY_AND_COMPANY-US200804006225

PATIENT
  Sex: Female

DRUGS (2)
  1. FORTEO [Suspect]
     Active Substance: TERIPARATIDE
     Dates: start: 20080415
  2. FORTEO [Suspect]
     Active Substance: TERIPARATIDE
     Dates: end: 200804

REACTIONS (4)
  - Influenza [Recovered/Resolved]
  - Feeling abnormal [Recovered/Resolved]
  - Bladder discomfort [Recovered/Resolved]
  - Urinary retention [Recovered/Resolved]
